FAERS Safety Report 7829400-4 (Version None)
Quarter: 2011Q4

REPORT INFORMATION
  Report Type: 
  Country: None (occurrence: None)
  Receive Date: 20111020
  Receipt Date: 20111014
  Transmission Date: 20120403
  Serious: Yes (Hospitalization)
  Sender: FDA-Public Use
  Company Number: IT-BAYER-2011-098940

PATIENT
  Age: 72 Year
  Sex: Male

DRUGS (11)
  1. INSULIN [Concomitant]
     Indication: DIABETES MELLITUS
  2. ASPIRIN [Suspect]
     Indication: PROPHYLAXIS
     Dosage: 100 MG, QD
     Route: 048
     Dates: start: 20110101
  3. OMEPRAZOLE [Concomitant]
     Indication: PROPHYLAXIS
     Dosage: DAILY DOSE 20 MG
     Route: 048
  4. COUMADIN [Suspect]
     Indication: PROPHYLAXIS
     Dosage: 1 DF, PRN
     Route: 048
     Dates: start: 20110101
  5. LEVOTHYROXINE SODIUM [Concomitant]
     Dosage: DAILY DOSE 50 ?G
     Route: 048
  6. NAPRILENE [Concomitant]
     Dosage: DAILY DOSE 2.5 MG
     Route: 048
  7. CORDARONE [Concomitant]
     Dosage: DAILY DOSE 200 MG
     Route: 048
  8. PREDNISONE [Concomitant]
     Indication: OCULAR MYASTHENIA
     Dosage: DAILY DOSE 2.5 MG
     Route: 048
  9. LASIX [Concomitant]
     Dosage: DAILY DOSE 100 MG
     Route: 048
  10. METFORMIN HCL [Concomitant]
     Dosage: DAILY DOSE 1 G
  11. MESTINON [Concomitant]
     Indication: OCULAR MYASTHENIA
     Dosage: DAILY DOSE 4 DF
     Route: 048

REACTIONS (3)
  - ANAEMIA [None]
  - EPISTAXIS [None]
  - INTERNATIONAL NORMALISED RATIO INCREASED [None]
